FAERS Safety Report 17499471 (Version 1)
Quarter: 2020Q1

REPORT INFORMATION
  Report Type: Spontaneous
  Country: FR (occurrence: FR)
  Receive Date: 20200305
  Receipt Date: 20200305
  Transmission Date: 20200409
  Serious: Yes (Hospitalization)
  Sender: FDA-Public Use
  Company Number: FR-ACCORD-174873

PATIENT
  Age: 61 Year
  Sex: Female

DRUGS (6)
  1. CISPLATIN. [Suspect]
     Active Substance: CISPLATIN
     Indication: TONSILLAR NEOPLASM
     Route: 041
     Dates: start: 20200127, end: 20200127
  2. NOVORAPID [Concomitant]
     Active Substance: INSULIN ASPART
     Dosage: INCONNUE
     Route: 058
  3. PREDNISOLONE. [Concomitant]
     Active Substance: PREDNISOLONE
     Indication: CROHN^S DISEASE
     Route: 048
  4. METHOTREXATE. [Concomitant]
     Active Substance: METHOTREXATE
     Indication: CROHN^S DISEASE
     Route: 051
  5. ABASAGLAR [Concomitant]
     Active Substance: INSULIN GLARGINE
     Dosage: STRENGTH: 100 UNITS / ML
     Route: 058
  6. ZOLPIDEM [Concomitant]
     Active Substance: ZOLPIDEM TARTRATE
     Route: 048

REACTIONS (6)
  - Hypomagnesaemia [Not Recovered/Not Resolved]
  - Febrile bone marrow aplasia [Recovered/Resolved]
  - Blood phosphorus decreased [Recovered/Resolved]
  - Hypocalcaemia [Not Recovered/Not Resolved]
  - Hypokalaemia [Recovered/Resolved]
  - Renal failure [Recovered/Resolved]

NARRATIVE: CASE EVENT DATE: 20200208
